FAERS Safety Report 7363978-2 (Version None)
Quarter: 2011Q1

REPORT INFORMATION
  Report Type: 
  Country: None (occurrence: None)
  Receive Date: 20110321
  Receipt Date: 20110304
  Transmission Date: 20110831
  Serious: No
  Sender: FDA-Public Use
  Company Number: US-TYCO HEALTHCARE/MALLINCKRODT-T201100552

PATIENT
  Sex: Female

DRUGS (5)
  1. LISINOPRIL [Concomitant]
  2. CARAFATE [Concomitant]
     Dosage: UNK
     Dates: start: 20100901
  3. NUVIGIL [Suspect]
     Dosage: UNK
     Dates: start: 20110206
  4. METHADOSE [Suspect]
     Dosage: UNK
     Dates: start: 20110206
  5. XANAX [Concomitant]

REACTIONS (2)
  - PSYCHOMOTOR HYPERACTIVITY [None]
  - FEELING JITTERY [None]
